FAERS Safety Report 7545306-2 (Version None)
Quarter: 2011Q2

REPORT INFORMATION
  Report Type: 
  Country: None (occurrence: None)
  Receive Date: 20110614
  Receipt Date: 20110531
  Transmission Date: 20111010
  Serious: Yes (Death)
  Sender: FDA-Public Use
  Company Number: GB-RANBAXY-2011R1-44861

PATIENT
  Sex: Female

DRUGS (4)
  1. CARBAMAZEPINE [Concomitant]
     Indication: EPILEPSY
     Route: 065
  2. VALPROIC ACID [Concomitant]
     Indication: EPILEPSY
     Route: 065
  3. PHENOBARBITAL TAB [Concomitant]
     Indication: EPILEPSY
     Route: 065
  4. TOPIRAMATE [Suspect]
     Indication: EPILEPSY
     Route: 048

REACTIONS (2)
  - STATUS EPILEPTICUS [None]
  - MITOCHONDRIAL ENZYME DEFICIENCY [None]
